FAERS Safety Report 6774096-6 (Version None)
Quarter: 2010Q2

REPORT INFORMATION
  Report Type: 
  Country: None (occurrence: None)
  Receive Date: 20100616
  Receipt Date: 20100616
  Transmission Date: 20101027
  Serious: Yes (Hospitalization)
  Sender: FDA-Public Use
  Company Number: None

PATIENT
  Age: 89 Year
  Sex: Male
  Weight: 73 kg

DRUGS (13)
  1. FERAHEME [Suspect]
     Indication: ANAEMIA
     Dosage: 510MG ONCE IV BOLUS 2 DOSES
     Route: 040
  2. FERAHEME [Suspect]
     Indication: RENAL FAILURE CHRONIC
     Dosage: 510MG ONCE IV BOLUS 2 DOSES
     Route: 040
  3. ALLOPURINOL [Concomitant]
  4. ASPIRIN [Concomitant]
  5. CALCITRIOL [Concomitant]
  6. CARVEDILOL [Concomitant]
  7. FAMOTIDINE [Concomitant]
  8. FUROSEMIDE [Concomitant]
  9. ISOSORBIDE MONONITRATE ER [Concomitant]
  10. LISINOPRIL [Concomitant]
  11. M.V.I. [Concomitant]
  12. VITAMIN-MINERAL COMPOUND TAB [Concomitant]
  13. TERAZOSIN HCL [Concomitant]

REACTIONS (8)
  - ABDOMINAL DISCOMFORT [None]
  - DIZZINESS [None]
  - HYPOVENTILATION [None]
  - INFUSION RELATED REACTION [None]
  - LOSS OF CONSCIOUSNESS [None]
  - SKIN DISCOLOURATION [None]
  - TREMOR [None]
  - VOMITING [None]
